FAERS Safety Report 18024748 (Version 1)
Quarter: 2020Q3

REPORT INFORMATION
  Report Type: Spontaneous
  Country: US (occurrence: US)
  Receive Date: 20200714
  Receipt Date: 20200714
  Transmission Date: 20201103
  Serious: Yes (Hospitalization)
  Sender: FDA-Public Use
  Company Number: None

PATIENT
  Age: 77 Year
  Sex: Male

DRUGS (1)
  1. ATENOLOL (ATENOLOL 25MG TAB) [Suspect]
     Active Substance: ATENOLOL
     Indication: HYPERTENSION
     Dates: start: 20160504, end: 20200106

REACTIONS (4)
  - Sinus bradycardia [None]
  - Atrioventricular block [None]
  - Palpitations [None]
  - Abdominal pain upper [None]

NARRATIVE: CASE EVENT DATE: 20200106
